FAERS Safety Report 20927919 (Version 1)
Quarter: 2022Q2

REPORT INFORMATION
  Report Type: Spontaneous
  Country: US (occurrence: US)
  Receive Date: 20220607
  Receipt Date: 20220607
  Transmission Date: 20220721
  Serious: No
  Sender: FDA-Public Use
  Company Number: US-009507513-2205USA006266

PATIENT
  Age: 44 Year
  Sex: Female
  Weight: 87 kg

DRUGS (3)
  1. BRIDION [Suspect]
     Active Substance: SUGAMMADEX
     Dosage: INITIALLY: 200ML
     Dates: start: 202110
  2. BRIDION [Suspect]
     Active Substance: SUGAMMADEX
     Dosage: SECOND: 300ML
     Dates: start: 202110
  3. ROCURONIUM [Suspect]
     Active Substance: ROCURONIUM BROMIDE
     Dosage: UNK
     Dates: start: 202110

REACTIONS (2)
  - Asthenia [Recovering/Resolving]
  - Drug ineffective [Unknown]

NARRATIVE: CASE EVENT DATE: 20211001
